FAERS Safety Report 5839793-5 (Version None)
Quarter: 2008Q3

REPORT INFORMATION
  Report Type: 
  Country: None (occurrence: None)
  Receive Date: 20080811
  Receipt Date: 20080729
  Transmission Date: 20090109
  Serious: Yes (Other)
  Sender: FDA-Public Use
  Company Number: IT-BAYER-200822740GPV

PATIENT
  Age: 51 Year
  Sex: Female

DRUGS (1)
  1. ASPIRIN [Suspect]
     Indication: OROPHARYNGEAL PAIN
     Route: 048
     Dates: start: 20080416, end: 20080416

REACTIONS (2)
  - UPPER RESPIRATORY TRACT INFLAMMATION [None]
  - URTICARIA [None]
